FAERS Safety Report 7222630-4 (Version None)
Quarter: 2011Q1

REPORT INFORMATION
  Report Type: 
  Country: None (occurrence: None)
  Receive Date: 20110103
  Receipt Date: 20101227
  Transmission Date: 20110831
  Serious: Yes (Life-Threatening)
  Sender: FDA-Public Use
  Company Number: 2010MA005565

PATIENT
  Age: 56 Year
  Sex: Female

DRUGS (10)
  1. QUININE [Concomitant]
  2. IBUPROFEN [Suspect]
     Dates: start: 20101217
  3. ATENOLOL [Concomitant]
  4. METOCLOPRAMIDE [Concomitant]
  5. FUCITHALMIC [Concomitant]
  6. AMLODIPINE [Concomitant]
  7. RAMIPRIL [Concomitant]
  8. SIMVASTATIN [Concomitant]
  9. CO-CODAMOL [Concomitant]
  10. GAVISCON [Concomitant]

REACTIONS (1)
  - SWELLING FACE [None]
